FAERS Safety Report 8820993 (Version 2)
Quarter: 2015Q1

REPORT INFORMATION
  Report Type: Report from Study
  Country: US (occurrence: US)
  Receive Date: 20121002
  Receipt Date: 20150209
  Transmission Date: 20150721
  Serious: Yes (Death)
  Sender: FDA-Public Use
  Company Number: US-ROCHE-1131940

PATIENT
  Sex: Male

DRUGS (7)
  1. BENADRYL [Concomitant]
     Active Substance: DIPHENHYDRAMINE HYDROCHLORIDE
     Route: 042
     Dates: start: 20100512
  2. METHYLPREDNISOLONE SODIUM PHOSPHATE [Concomitant]
     Active Substance: METHYLPREDNISOLONE SODIUM PHOSPHATE
     Route: 042
  3. BENADRYL [Concomitant]
     Active Substance: DIPHENHYDRAMINE HYDROCHLORIDE
     Route: 042
     Dates: start: 20100505
  4. RITUXAN [Suspect]
     Active Substance: RITUXIMAB
     Indication: GRANULOMATOSIS WITH POLYANGIITIS
     Route: 042
     Dates: start: 20100505
  5. RITUXAN [Suspect]
     Active Substance: RITUXIMAB
     Indication: GRANULOMATOSIS WITH POLYANGIITIS
     Route: 042
     Dates: start: 20100512
  6. SOLU-MEDROL [Concomitant]
     Active Substance: METHYLPREDNISOLONE SODIUM SUCCINATE
     Route: 042
     Dates: start: 20100505
  7. RITUXAN [Suspect]
     Active Substance: RITUXIMAB
     Indication: RHEUMATOID ARTHRITIS

REACTIONS (3)
  - Death [Fatal]
  - Peripheral swelling [Recovering/Resolving]
  - Fatigue [Recovered/Resolved]
